FAERS Safety Report 12168587 (Version 1)
Quarter: 2016Q1

REPORT INFORMATION
  Report Type: Report from Study
  Country: US (occurrence: US)
  Receive Date: 20160310
  Receipt Date: 20160310
  Transmission Date: 20160526
  Serious: Yes (Hospitalization)
  Sender: FDA-Public Use
  Company Number: US-B.I. PHARMACEUTICALS,INC./RIDGEFIELD-2016-BI-07199BP

PATIENT
  Sex: Male

DRUGS (1)
  1. OFEV [Suspect]
     Active Substance: NINTEDANIB
     Indication: IDIOPATHIC PULMONARY FIBROSIS
     Dosage: 300 MG
     Route: 048
     Dates: start: 20160218

REACTIONS (9)
  - Weight decreased [Unknown]
  - Neuropathy peripheral [Unknown]
  - Visual impairment [Unknown]
  - Pneumonia [Unknown]
  - Intestinal obstruction [Unknown]
  - Adverse drug reaction [Unknown]
  - Nausea [Unknown]
  - Chest pain [Unknown]
  - Gastrointestinal disorder [Unknown]
